APPROVED DRUG PRODUCT: CEFAZOLIN AND DEXTROSE
Active Ingredient: CEFAZOLIN SODIUM
Strength: EQ 1GM BASE/VIAL
Dosage Form/Route: INJECTABLE;INJECTION
Application: N050779 | Product #002
Applicant: B BRAUN MEDICAL INC
Approved: Jul 27, 2000 | RLD: Yes | RS: Yes | Type: RX